FAERS Safety Report 7251649-2 (Version None)
Quarter: 2011Q1

REPORT INFORMATION
  Report Type: 
  Country: None (occurrence: None)
  Receive Date: 20110128
  Receipt Date: 20110125
  Transmission Date: 20110831
  Serious: Yes (Hospitalization)
  Sender: FDA-Public Use
  Company Number: US-PFIZER INC-2011013340

PATIENT
  Sex: Female
  Weight: 68.934 kg

DRUGS (11)
  1. POTASSIUM [Concomitant]
     Dosage: UNK
  2. CHANTIX [Suspect]
     Indication: SMOKING CESSATION THERAPY
     Dosage: UNK
     Route: 048
  3. CHANTIX [Suspect]
     Dosage: 1 MG, UNK
     Route: 048
  4. ZOLPIDEM [Concomitant]
     Dosage: 10 MG, 1X/DAY
  5. CHANTIX [Suspect]
     Dosage: 0.5 MG, 1X/DAY
     Route: 048
     Dates: start: 20101201
  6. OMEPRAZOLE [Concomitant]
     Indication: GASTRIC DISORDER
     Dosage: 40 MG, UNK
  7. VICODIN [Concomitant]
     Indication: FIBROMYALGIA
     Dosage: UNK
     Route: 048
  8. GABAPENTIN [Concomitant]
     Dosage: UNK
  9. LORAZEPAM [Concomitant]
     Dosage: UNK
  10. SIMVASTATIN [Concomitant]
     Dosage: UNK
  11. NITRO-DUR [Concomitant]
     Dosage: UNK

REACTIONS (1)
  - BLOOD PRESSURE INCREASED [None]
